FAERS Safety Report 10696596 (Version 19)
Quarter: 2016Q2

REPORT INFORMATION
  Report Type: Report from Study
  Country: US (occurrence: US)
  Receive Date: 20150107
  Receipt Date: 20160519
  Transmission Date: 20160815
  Serious: Yes (Congenital Anomaly, Other)
  Sender: FDA-Public Use
  Company Number: US-GLAXOSMITHKLINE-US2014GSK045418

PATIENT
  Age: 0 Year
  Sex: Male
  Weight: 3.63 kg

DRUGS (16)
  1. METHOTREXATE [Concomitant]
     Active Substance: METHOTREXATE
     Dosage: UNK
     Dates: end: 201410
  2. PREDNISONE. [Concomitant]
     Active Substance: PREDNISONE
     Indication: SYSTEMIC LUPUS ERYTHEMATOSUS
     Dosage: 5 MG, QD
     Route: 064
     Dates: end: 201410
  3. XYREM [Concomitant]
     Active Substance: SODIUM OXYBATE
  4. BELIMUMAB [Suspect]
     Active Substance: BELIMUMAB
     Indication: SYSTEMIC LUPUS ERYTHEMATOSUS
     Dosage: 10 MG/KG, U
     Route: 064
     Dates: start: 20140721, end: 20140819
  5. ASPIRIN. [Concomitant]
     Active Substance: ASPIRIN
     Dosage: UNK
     Dates: start: 2014
  6. FOLATE [Concomitant]
     Active Substance: FOLATE SODIUM
  7. SYNTHROID [Concomitant]
     Active Substance: LEVOTHYROXINE SODIUM
  8. YAZ [Concomitant]
     Active Substance: DROSPIRENONE\ETHINYL ESTRADIOL
  9. PREDNISONE. [Concomitant]
     Active Substance: PREDNISONE
     Dosage: 5 UNK, UNK
     Route: 064
     Dates: start: 20150112
  10. PROPRANOLOL [Concomitant]
     Active Substance: PROPRANOLOL\PROPRANOLOL HYDROCHLORIDE
     Indication: SINUS TACHYCARDIA
     Dosage: UNK
     Dates: start: 20150112
  11. ROPINIROLE. [Concomitant]
     Active Substance: ROPINIROLE
  12. ATIVAN [Concomitant]
     Active Substance: LORAZEPAM
  13. NUCYNTA [Concomitant]
     Active Substance: TAPENTADOL HYDROCHLORIDE
  14. PLAQUENIL [Concomitant]
     Active Substance: HYDROXYCHLOROQUINE SULFATE
  15. AMITRIPTYLINE [Concomitant]
     Active Substance: AMITRIPTYLINE
  16. FELDENE [Concomitant]
     Active Substance: PIROXICAM

REACTIONS (11)
  - Cardiac murmur [Unknown]
  - Umbilical cord compression [Unknown]
  - Dermatitis diaper [Unknown]
  - Cardiac septal defect [Recovering/Resolving]
  - Ventricular septal defect [Recovered/Resolved]
  - Infantile colic [Unknown]
  - Atrial septal defect [Recovered/Resolved]
  - Foetal exposure during pregnancy [Unknown]
  - Poor weight gain neonatal [Unknown]
  - Patent ductus arteriosus [Recovered/Resolved]
  - Neonatal disorder [Unknown]

NARRATIVE: CASE EVENT DATE: 20141121
